FAERS Safety Report 4292384-2 (Version None)
Quarter: 2004Q1

REPORT INFORMATION
  Report Type: 
  Country: None (occurrence: None)
  Receive Date: 20040126
  Receipt Date: 20030827
  Transmission Date: 20041129
  Serious: No
  Sender: FDA-Public Use
  Company Number: USA030843084

PATIENT
  Age: 79 Year
  Sex: Female
  Weight: 52 kg

DRUGS (10)
  1. FORTEO [Suspect]
     Indication: OSTEOPOROSIS
     Dosage: 20 UG/DAY
     Dates: start: 20030401
  2. VIACTIV [Concomitant]
  3. LABETALOL HCL [Concomitant]
  4. SYNTHROID [Concomitant]
  5. PRAVACHOL [Concomitant]
  6. CALCIUM [Concomitant]
  7. MULTIVITAMINS NOS (MULTIVITAMINS NOS) [Concomitant]
  8. CLARITIN [Concomitant]
  9. ASPIRIN [Concomitant]
  10. CITRACAL (CALCIUM CITRATE) [Concomitant]

REACTIONS (11)
  - ARTHRALGIA [None]
  - CHEST PAIN [None]
  - CONSTIPATION [None]
  - DIZZINESS [None]
  - DYSPEPSIA [None]
  - INJECTION SITE HAEMORRHAGE [None]
  - MUSCLE CRAMP [None]
  - NAUSEA [None]
  - PAIN IN EXTREMITY [None]
  - SPONDYLITIS [None]
  - WEIGHT DECREASED [None]
